FAERS Safety Report 8328369 (Version 2)
Quarter: 2013Q1

REPORT INFORMATION
  Report Type: Spontaneous
  Country: US (occurrence: US)
  Receive Date: 20120110
  Receipt Date: 20130107
  Transmission Date: 20140127
  Serious: Yes (Other)
  Sender: FDA-Public Use
  Company Number: US-TYCO HEALTHCARE/MALLINCKRODT-T201101348

PATIENT
  Age: 66 Year
  Sex: Female

DRUGS (3)
  1. OPTIRAY [Suspect]
     Indication: COMPUTERISED TOMOGRAM ABDOMEN
     Dosage: 100 ML, SINGLE
     Route: 042
     Dates: start: 20110706, end: 20110706
  2. MEDROL                             /00049601/ [Concomitant]
     Indication: PREMEDICATION
  3. BENADRYL                           /00000402/ [Concomitant]
     Indication: PREMEDICATION
     Dosage: 50 MG, SINGLE
     Dates: start: 20110706, end: 20110706

REACTIONS (1)
  - Throat tightness [Recovered/Resolved]
